FAERS Safety Report 4492185-6 (Version None)
Quarter: 2004Q4

REPORT INFORMATION
  Report Type: 
  Country: None (occurrence: None)
  Receive Date: 20041101
  Receipt Date: 20041025
  Transmission Date: 20050328
  Serious: Yes (Other)
  Sender: FDA-Public Use
  Company Number: 003061

PATIENT
  Age: 67 Year
  Sex: Female

DRUGS (3)
  1. AYGESTIN [Suspect]
     Dosage: ORAL
     Route: 046
     Dates: start: 19920101, end: 20010101
  2. ESTRACE [Suspect]
     Dosage: ORAL
     Route: 048
     Dates: start: 19920101, end: 20010101
  3. MEDROXYPROGESTERONE ACETATE [Suspect]
     Dosage: ORAL
     Route: 048
     Dates: start: 19920101, end: 20010101

REACTIONS (3)
  - BREAST CANCER [None]
  - OESTROGEN RECEPTOR ASSAY POSITIVE [None]
  - PROGESTERONE RECEPTOR ASSAY POSITIVE [None]
